FAERS Safety Report 8045876-4 (Version None)
Quarter: 2012Q1

REPORT INFORMATION
  Report Type: 
  Country: None (occurrence: None)
  Receive Date: 20120113
  Receipt Date: 20120111
  Transmission Date: 20120608
  Serious: Yes (Congenital Anomaly)
  Sender: FDA-Public Use
  Company Number: US-GLAXOSMITHKLINE-A0929221B

PATIENT
  Sex: Female
  Weight: 3.6 kg

DRUGS (4)
  1. BOOSTRIX [Suspect]
     Indication: PROPHYLAXIS
     Dosage: .5ML SINGLE DOSE
     Route: 064
     Dates: start: 20110525, end: 20110525
  2. M.V.I. [Concomitant]
     Route: 064
  3. CLOBETASOL [Suspect]
     Indication: PRODUCT USED FOR UNKNOWN INDICATION
     Route: 064
  4. ALLEGRA [Concomitant]
     Route: 064

REACTIONS (2)
  - MATERNAL EXPOSURE TIMING UNSPECIFIED [None]
  - PLAGIOCEPHALY [None]
